FAERS Safety Report 8142017-X (Version None)
Quarter: 2012Q1

REPORT INFORMATION
  Report Type: 
  Country: None (occurrence: None)
  Receive Date: 20120216
  Receipt Date: 20120207
  Transmission Date: 20120608
  Serious: No
  Sender: FDA-Public Use
  Company Number: US-B.I. PHARMACEUTICALS,INC./RIDGEFIELD-2012-BP-02330BP

PATIENT
  Age: 76 Year
  Sex: Male

DRUGS (3)
  1. NORVASC [Concomitant]
  2. SPIRIVA [Suspect]
     Route: 055
     Dates: start: 20091201, end: 20120206
  3. ALBUTEROL [Concomitant]

REACTIONS (3)
  - CONSTIPATION [None]
  - VISION BLURRED [None]
  - OEDEMA PERIPHERAL [None]
